FAERS Safety Report 25374398 (Version 14)
Quarter: 2025Q4

REPORT INFORMATION
  Report Type: Spontaneous
  Country: CA (occurrence: CA)
  Receive Date: 20250529
  Receipt Date: 20251201
  Transmission Date: 20260117
  Serious: Yes (Hospitalization, Other)
  Sender: PFIZER
  Company Number: CA-PFIZER INC-202500108703

PATIENT
  Age: 66 Year
  Sex: Female
  Weight: 67 kg

DRUGS (6)
  1. IXIFI [Suspect]
     Active Substance: INFLIXIMAB-QBTX
     Indication: Colitis ulcerative
     Dosage: 10 MG/KG, WEEK 0, 2, 6 THEN EVERY 8 WEEKS
     Route: 042
     Dates: start: 20250430
  2. IXIFI [Suspect]
     Active Substance: INFLIXIMAB-QBTX
     Dosage: 10 MG/KG, WEEK 0, 2, 6 THEN EVERY 8 WEEKS
     Route: 042
     Dates: start: 20250516
  3. IXIFI [Suspect]
     Active Substance: INFLIXIMAB-QBTX
     Dosage: 10 MG/KG, WEEK 0, 2, 6 THEN EVERY 8 WEEKS
     Route: 042
     Dates: start: 20250613
  4. IXIFI [Suspect]
     Active Substance: INFLIXIMAB-QBTX
     Dosage: 10 MG/KG, WEEK 0, 2, 6 THEN EVERY 8 WEEKS(IN HOSPITAL, REINDUCTION)
     Route: 042
     Dates: start: 20250906
  5. IXIFI [Suspect]
     Active Substance: INFLIXIMAB-QBTX
     Dosage: 670 MG, 1 WEEK AND 5 DAYS, (10 MG/KG W 0,2,6 WEEKS)
     Route: 042
     Dates: start: 20250918
  6. IXIFI [Suspect]
     Active Substance: INFLIXIMAB-QBTX
     Dosage: 693 MG, AFTER 4 WEEKS (10 MG/KG W 0,2,6 WEEKS) (EVERY 8 WEEKS), DISCONTINUED
     Route: 042
     Dates: start: 20251017

REACTIONS (28)
  - Large intestine perforation [Not Recovered/Not Resolved]
  - Ileostomy [Recovering/Resolving]
  - Abdominal abscess [Not Recovered/Not Resolved]
  - Diverticulitis [Unknown]
  - Escherichia bacteraemia [Unknown]
  - Gastroenteritis bacterial [Unknown]
  - Loss of consciousness [Recovered/Resolved]
  - Neurogenic shock [Recovered/Resolved]
  - Drug ineffective [Unknown]
  - Head injury [Recovered/Resolved]
  - Neck pain [Unknown]
  - Musculoskeletal chest pain [Unknown]
  - Muscle spasms [Recovering/Resolving]
  - Contusion [Unknown]
  - Decreased appetite [Not Recovered/Not Resolved]
  - Blood potassium decreased [Unknown]
  - Asthenia [Unknown]
  - Papule [Recovered/Resolved]
  - Nausea [Not Recovered/Not Resolved]
  - Diarrhoea [Unknown]
  - Headache [Recovered/Resolved]
  - Erythema [Recovered/Resolved]
  - Condition aggravated [Not Recovered/Not Resolved]
  - Pyrexia [Unknown]
  - Erythema [Unknown]
  - Hypoaesthesia [Not Recovered/Not Resolved]
  - Gastrooesophageal reflux disease [Unknown]
  - Off label use [Unknown]

NARRATIVE: CASE EVENT DATE: 20250101
